FAERS Safety Report 24624480 (Version 2)
Quarter: 2025Q1

REPORT INFORMATION
  Report Type: Report from Study
  Country: US (occurrence: US)
  Receive Date: 20241115
  Receipt Date: 20250214
  Transmission Date: 20250408
  Serious: Yes (Hospitalization, Other)
  Sender: SUNOVION
  Company Number: US-SMPA-2024SPA005016

PATIENT

DRUGS (1)
  1. ORGOVYX [Suspect]
     Active Substance: RELUGOLIX
     Indication: Prostate cancer
     Dosage: 120 MG, QD
     Route: 048
     Dates: start: 20211028

REACTIONS (2)
  - Neoplasm malignant [Unknown]
  - Surgery [Unknown]
